FAERS Safety Report 5002300-3 (Version None)
Quarter: 2006Q2

REPORT INFORMATION
  Report Type: 
  Country: None (occurrence: None)
  Receive Date: 20060510
  Receipt Date: 20060430
  Transmission Date: 20061013
  Serious: Yes (Other)
  Sender: FDA-Public Use
  Company Number: 2006057686

PATIENT
  Sex: Male

DRUGS (1)
  1. UNISOM [Suspect]
     Indication: DEPRESSION
     Dosage: 96 TABS ONCE, ORAL
     Route: 048
     Dates: start: 20060430, end: 20060430

REACTIONS (2)
  - INCOHERENT [None]
  - INCORRECT DOSE ADMINISTERED [None]
